FAERS Safety Report 13640593 (Version 1)
Quarter: 2017Q2

REPORT INFORMATION
  Report Type: Spontaneous
  Country: US (occurrence: US)
  Receive Date: 20170609
  Receipt Date: 20170609
  Transmission Date: 20170830
  Serious: Yes (Hospitalization)
  Sender: FDA-Public Use
  Company Number: None

PATIENT
  Age: 46 Year
  Sex: Female
  Weight: 70.3 kg

DRUGS (3)
  1. ETOPOSIDE (VP-16) [Suspect]
     Active Substance: ETOPOSIDE
     Dates: end: 20161223
  2. ONCASPAR [Suspect]
     Active Substance: PEGASPARGASE
     Dates: end: 20161223
  3. CYTARABINE. [Suspect]
     Active Substance: CYTARABINE
     Dates: end: 20161223

REACTIONS (8)
  - Aspiration [None]
  - Oxygen saturation decreased [None]
  - Heart rate increased [None]
  - Dyspnoea [None]
  - Pleural effusion [None]
  - Pneumonia [None]
  - Pyrexia [None]
  - Anaemia [None]

NARRATIVE: CASE EVENT DATE: 20170105
